FAERS Safety Report 12569915 (Version 5)
Quarter: 2016Q3

REPORT INFORMATION
  Report Type: Spontaneous
  Country: US (occurrence: US)
  Receive Date: 20160719
  Receipt Date: 20160818
  Transmission Date: 20161109
  Serious: Yes (Death, Other)
  Sender: FDA-Public Use
  Company Number: US-GLAXOSMITHKLINE-US2016101987

PATIENT
  Sex: Female
  Weight: 114.29 kg

DRUGS (1)
  1. NUCALA [Suspect]
     Active Substance: MEPOLIZUMAB
     Indication: ASTHMA
     Dosage: 100 MG, SINGLE
     Route: 042
     Dates: start: 20160617, end: 20160617

REACTIONS (3)
  - Myocardial infarction [Fatal]
  - Dehydration [Unknown]
  - Pulmonary thrombosis [Fatal]
